FAERS Safety Report 21781430 (Version 1)
Quarter: 2022Q4

REPORT INFORMATION
  Report Type: Report from Study
  Country: US (occurrence: US)
  Receive Date: 20221227
  Receipt Date: 20221227
  Transmission Date: 20230113
  Serious: No
  Sender: FDA-Public Use
  Company Number: US-ABBVIE-4211004

PATIENT
  Sex: Male

DRUGS (2)
  1. HUMIRA [Suspect]
     Active Substance: ADALIMUMAB
     Indication: Crohn^s disease
     Dosage: CF?DRUG END DATE - --2022?FORM STRENGTH: 40 MG
     Route: 058
  2. HUMIRA [Suspect]
     Active Substance: ADALIMUMAB
     Dosage: CF ?FORM STRENGTH: 40 MG?LOADING DOSE
     Route: 058
     Dates: start: 20221121

REACTIONS (2)
  - Crohn^s disease [Recovered/Resolved]
  - Dairy intolerance [Unknown]
